FAERS Safety Report 23590574 (Version 2)
Quarter: 2024Q1

REPORT INFORMATION
  Report Type: Spontaneous
  Country: JP (occurrence: JP)
  Receive Date: 20240304
  Receipt Date: 20240311
  Transmission Date: 20240410
  Serious: Yes (Death, Other)
  Sender: FDA-Public Use
  Company Number: JP-BRISTOL-MYERS SQUIBB COMPANY-2024-032641

PATIENT

DRUGS (2)
  1. YERVOY [Suspect]
     Active Substance: IPILIMUMAB
     Indication: Renal cell carcinoma
     Dosage: DOSE : OP: 240MG, YV: 1MG/KG;     FREQ : OP: ONCE EVERY 3 WEEKS?YV: ONCE EVERY 3 WEEKS
     Route: 041
     Dates: start: 20240220, end: 20240220
  2. OPDIVO [Suspect]
     Active Substance: NIVOLUMAB
     Indication: Renal cell carcinoma
     Dosage: DOSE : OP: 240MG, YV: 1MG/KG;     FREQ : OP: ONCE EVERY 3 WEEKS?YV: ONCE EVERY 3 WEEKS
     Route: 041
     Dates: start: 20240220, end: 20240220

REACTIONS (1)
  - Sudden death [Fatal]

NARRATIVE: CASE EVENT DATE: 20240224
